FAERS Safety Report 8357011-3 (Version None)
Quarter: 2012Q2

REPORT INFORMATION
  Report Type: 
  Country: None (occurrence: None)
  Receive Date: 20120514
  Receipt Date: 20120504
  Transmission Date: 20120825
  Serious: Yes (Hospitalization)
  Sender: FDA-Public Use
  Company Number: US-BAYER-2012-040482

PATIENT
  Age: 84 Year
  Sex: Female

DRUGS (3)
  1. XARELTO [Interacting]
     Indication: HIP ARTHROPLASTY
  2. ASPIRIN [Suspect]
     Indication: ANTIPLATELET THERAPY
  3. XARELTO [Interacting]
     Indication: THROMBOSIS PROPHYLAXIS
     Route: 048

REACTIONS (1)
  - RECTAL HAEMORRHAGE [None]
